FAERS Safety Report 6783588-5 (Version None)
Quarter: 2010Q2

REPORT INFORMATION
  Report Type: 
  Country: None (occurrence: None)
  Receive Date: 20100618
  Receipt Date: 20100520
  Transmission Date: 20101027
  Serious: Yes (Hospitalization)
  Sender: FDA-Public Use
  Company Number: 013881

PATIENT
  Sex: Female

DRUGS (2)
  1. CIMZIA [Suspect]
     Dosage: SUBCUTANEOUS
     Route: 058
     Dates: start: 20091101
  2. ANTIBIOTICS [Suspect]

REACTIONS (5)
  - CLOSTRIDIUM TEST POSITIVE [None]
  - EAR INFECTION [None]
  - NAUSEA [None]
  - PAIN [None]
  - PYREXIA [None]
